FAERS Safety Report 17218075 (Version 1)
Quarter: 2019Q4

REPORT INFORMATION
  Report Type: Spontaneous
  Country: FR (occurrence: FR)
  Receive Date: 20191231
  Receipt Date: 20191231
  Transmission Date: 20200122
  Serious: Yes (Other)
  Sender: FDA-Public Use
  Company Number: ALC2019FR003068

PATIENT

DRUGS (1)
  1. ATROPINE. [Suspect]
     Active Substance: ATROPINE
     Indication: POSTOPERATIVE CARE
     Dosage: 3 DRP, QD
     Route: 047
     Dates: start: 20191015, end: 20191021

REACTIONS (6)
  - Skin exfoliation [Recovered/Resolved]
  - Formication [Recovered/Resolved]
  - Onychalgia [Recovered/Resolved]
  - Paraesthesia [Recovered/Resolved]
  - Burning sensation [Recovered/Resolved]
  - Toxic skin eruption [Recovered/Resolved]

NARRATIVE: CASE EVENT DATE: 20191015
